FAERS Safety Report 18558606 (Version 2)
Quarter: 2020Q4

REPORT INFORMATION
  Report Type: Spontaneous
  Country: JP (occurrence: JP)
  Receive Date: 20201130
  Receipt Date: 20201230
  Transmission Date: 20210114
  Serious: Yes (Other)
  Sender: FDA-Public Use
  Company Number: NVSJ2020JP012489

PATIENT
  Age: 33 Year
  Sex: Female

DRUGS (2)
  1. MAYZENT [Suspect]
     Active Substance: SIPONIMOD
     Indication: SECONDARY PROGRESSIVE MULTIPLE SCLEROSIS
     Dosage: 0.25 MG, ONCE/SINGLE
     Route: 048
     Dates: start: 20201106, end: 20201106
  2. BESACOLIN [Concomitant]
     Active Substance: BETHANECHOL CHLORIDE
     Indication: PRODUCT USED FOR UNKNOWN INDICATION
     Dosage: UNK
     Route: 048

REACTIONS (2)
  - Extrasystoles [Unknown]
  - Electrocardiogram QT prolonged [Recovered/Resolved]

NARRATIVE: CASE EVENT DATE: 20201106
